FAERS Safety Report 25536292 (Version 2)
Quarter: 2025Q4

REPORT INFORMATION
  Report Type: Report from Study
  Country: US (occurrence: US)
  Receive Date: 20250709
  Receipt Date: 20251013
  Transmission Date: 20260117
  Serious: No
  Sender: TG THERAPEUTICS
  Company Number: US-TG THERAPEUTICS INC.-TGT005253

PATIENT

DRUGS (3)
  1. UBLITUXIMAB [Suspect]
     Active Substance: UBLITUXIMAB
     Indication: Multiple sclerosis
     Dosage: 150 MILLIGRAM
     Route: 042
     Dates: start: 20250523, end: 20250523
  2. BACLOFEN [Concomitant]
     Active Substance: BACLOFEN
     Indication: Muscle spasticity
     Dosage: 10 MILLIGRAM, TID
     Route: 048
     Dates: start: 20250226
  3. OXCARBAZEPINE [Concomitant]
     Active Substance: OXCARBAZEPINE
     Indication: Muscle spasms
     Dosage: 300 MILLIGRAM, BID
     Route: 048
     Dates: start: 20250321

REACTIONS (3)
  - Infusion related reaction [Recovered/Resolved]
  - Malaise [Recovered/Resolved]
  - Pyrexia [Recovered/Resolved]

NARRATIVE: CASE EVENT DATE: 20250501
